FAERS Safety Report 18670827 (Version 1)
Quarter: 2020Q4

REPORT INFORMATION
  Report Type: Report from Study
  Country: CA (occurrence: CA)
  Receive Date: 20201228
  Receipt Date: 20201228
  Transmission Date: 20210114
  Serious: Yes (Other)
  Sender: FDA-Public Use
  Company Number: CA-TAKEDA-2020TUS032685

PATIENT
  Age: 59 Year
  Sex: Female

DRUGS (6)
  1. CODEINE [Concomitant]
     Active Substance: CODEINE
     Dosage: UNK
  2. CANNABIS [Concomitant]
     Active Substance: CANNABIS SATIVA SUBSP. INDICA TOP
     Dosage: UNK
  3. VEDOLIZUMAB [Suspect]
     Active Substance: VEDOLIZUMAB
     Indication: COLITIS ULCERATIVE
     Dosage: 300 MILLIGRAM
     Route: 042
     Dates: start: 20200303
  4. CLONAZEPAM. [Concomitant]
     Active Substance: CLONAZEPAM
     Dosage: UNK
  5. PAXIL [Concomitant]
     Active Substance: PAROXETINE HYDROCHLORIDE
     Dosage: UNK
  6. VEDOLIZUMAB [Suspect]
     Active Substance: VEDOLIZUMAB
     Indication: CROHN^S DISEASE
     Dosage: 300 MILLIGRAM
     Route: 042
     Dates: start: 20190626

REACTIONS (13)
  - Mental disorder [Unknown]
  - Diarrhoea haemorrhagic [Not Recovered/Not Resolved]
  - Tinnitus [Unknown]
  - Haematochezia [Unknown]
  - Confusional state [Unknown]
  - Feeding disorder [Unknown]
  - Muscle disorder [Unknown]
  - Hypersomnia [Unknown]
  - Burning sensation [Unknown]
  - Asthenia [Unknown]
  - Amnesia [Unknown]
  - Toothache [Unknown]
  - Fatigue [Unknown]
